FAERS Safety Report 13463948 (Version 1)
Quarter: 2017Q2

REPORT INFORMATION
  Report Type: Spontaneous
  Country: US (occurrence: US)
  Receive Date: 20170420
  Receipt Date: 20170420
  Transmission Date: 20170830
  Serious: Yes (Other)
  Sender: FDA-Public Use
  Company Number: US-ROCHE-659108

PATIENT
  Age: 22 Year
  Sex: Male
  Weight: 104.3 kg

DRUGS (3)
  1. MINOCIN [Concomitant]
     Active Substance: MINOCYCLINE HYDROCHLORIDE
     Indication: ACNE
     Route: 065
  2. ACCUTANE [Suspect]
     Active Substance: ISOTRETINOIN
     Indication: ACNE
     Route: 065
     Dates: start: 19981001, end: 19990317
  3. RETIN-A [Concomitant]
     Active Substance: TRETINOIN
     Indication: ACNE
     Route: 065

REACTIONS (3)
  - Depression [Unknown]
  - Colitis [Unknown]
  - Inflammatory bowel disease [Unknown]

NARRATIVE: CASE EVENT DATE: 20040715
